FAERS Safety Report 17649371 (Version 1)
Quarter: 2020Q2

REPORT INFORMATION
  Report Type: Report from Study
  Country: CO (occurrence: CO)
  Receive Date: 20200409
  Receipt Date: 20200409
  Transmission Date: 20200713
  Serious: Yes (Hospitalization)
  Sender: FDA-Public Use
  Company Number: CO-ELI_LILLY_AND_COMPANY-CO202004002435

PATIENT
  Age: 80 Year
  Sex: Female

DRUGS (1)
  1. TERIPARATIDE [Suspect]
     Active Substance: TERIPARATIDE
     Indication: OSTEOPOROSIS
     Dosage: 20 MG, DAILY
     Route: 058
     Dates: start: 201804

REACTIONS (6)
  - General physical health deterioration [Unknown]
  - Pain in extremity [Unknown]
  - Gait disturbance [Unknown]
  - Fall [Unknown]
  - Pneumonia [Unknown]
  - Hip fracture [Unknown]

NARRATIVE: CASE EVENT DATE: 201903
